FAERS Safety Report 9154257 (Version 1)
Quarter: 2013Q1

REPORT INFORMATION
  Report Type: Spontaneous
  Country: US (occurrence: US)
  Receive Date: 20130311
  Receipt Date: 20130311
  Transmission Date: 20140127
  Serious: Yes (Hospitalization)
  Sender: FDA-Public Use
  Company Number: 2013SP000664

PATIENT
  Age: 77 Year
  Sex: Female
  Weight: 40 kg

DRUGS (8)
  1. BROVANA [Suspect]
     Indication: CHRONIC OBSTRUCTIVE PULMONARY DISEASE
     Route: 055
     Dates: start: 20121228
  2. BROVANA [Suspect]
     Indication: PNEUMONIA
     Route: 055
     Dates: start: 20121228
  3. BUDESONIDE [Suspect]
     Indication: CHRONIC OBSTRUCTIVE PULMONARY DISEASE
     Route: 055
  4. BUDESONIDE [Suspect]
     Indication: PNEUMONIA
     Route: 055
  5. HYDROCHLOROTHIAZIDE [Concomitant]
     Indication: PRODUCT USED FOR UNKNOWN INDICATION
     Dates: end: 20130301
  6. HYDRAZINOPHTHALAZINE DERIVATIVES AND DIURETIC [Concomitant]
     Indication: PRODUCT USED FOR UNKNOWN INDICATION
     Dates: end: 20130301
  7. ALBUTEROL /00139502/ [Concomitant]
     Indication: CHRONIC OBSTRUCTIVE PULMONARY DISEASE
  8. ALBUTEROL /00139502/ [Concomitant]
     Indication: PNEUMONIA

REACTIONS (4)
  - Pneumonia [Unknown]
  - Oxygen saturation decreased [Unknown]
  - Pyrexia [Unknown]
  - Weight decreased [Not Recovered/Not Resolved]
